FAERS Safety Report 7312703-X (Version None)
Quarter: 2011Q1

REPORT INFORMATION
  Report Type: 
  Country: None (occurrence: None)
  Receive Date: 20110224
  Receipt Date: 20110217
  Transmission Date: 20110831
  Serious: Yes (Other)
  Sender: FDA-Public Use
  Company Number: GB-BAXTER-2011BH004229

PATIENT
  Age: 42 Year
  Sex: Female

DRUGS (4)
  1. DOXORUBICIN HCL [Suspect]
     Route: 065
  2. DOXORUBICIN HCL [Suspect]
     Indication: PRODUCT USED FOR UNKNOWN INDICATION
     Route: 065
  3. IFOSFAMIDE [Suspect]
     Indication: PRODUCT USED FOR UNKNOWN INDICATION
     Route: 065
  4. DEXRAZOXANE [Suspect]
     Indication: LUNG DISORDER
     Route: 065

REACTIONS (4)
  - NEUTROPENIC SEPSIS [None]
  - SPINAL CORD COMPRESSION [None]
  - PATHOLOGICAL FRACTURE [None]
  - OSTEOMYELITIS FUNGAL [None]
